FAERS Safety Report 4316686-6 (Version None)
Quarter: 2004Q1

REPORT INFORMATION
  Report Type: 
  Country: None (occurrence: None)
  Receive Date: 20040311
  Receipt Date: 20040305
  Transmission Date: 20041129
  Serious: Yes (Death, Other)
  Sender: FDA-Public Use
  Company Number: 200210518BYL

PATIENT
  Age: 70 Year
  Sex: Female

DRUGS (6)
  1. CIPROFLOXACIN [Suspect]
     Indication: CHOLECYSTITIS
     Dosage: 300 MG, BID, INTRAVENOUS DRIP
     Route: 041
     Dates: start: 20020924, end: 20020925
  2. VOLTAREN [Concomitant]
  3. GASTER [Concomitant]
  4. TIENAM [Concomitant]
  5. GENTACIN [Concomitant]
  6. CLINDAMYCIN HCL [Concomitant]

REACTIONS (4)
  - CONDITION AGGRAVATED [None]
  - CONVULSION [None]
  - DRUG INEFFECTIVE [None]
  - PULMONARY OEDEMA [None]
